FAERS Safety Report 9589263 (Version 1)
Quarter: 2013Q4

REPORT INFORMATION
  Report Type: Spontaneous
  Country: US (occurrence: US)
  Receive Date: 20131003
  Receipt Date: 20131003
  Transmission Date: 20140711
  Serious: No
  Sender: FDA-Public Use
  Company Number: US-AMGEN-USASP2012069290

PATIENT
  Age: 58 Year
  Sex: Female

DRUGS (14)
  1. ENBREL [Suspect]
     Indication: PRODUCT USED FOR UNKNOWN INDICATION
     Dosage: 50 MG, QWK
     Route: 058
  2. GABAPENTIN [Concomitant]
     Dosage: 100 MG, UNK
  3. CYMBALTA [Concomitant]
     Dosage: 20 MG, UNK
  4. SIMVASTATIN [Concomitant]
     Dosage: 10 MG, UNK
  5. SINGULAIR [Concomitant]
     Dosage: 10 MG, UNK
  6. ASPIRIN [Concomitant]
     Dosage: 81 MG, UNK
  7. METOPROLOL TARTRAS [Concomitant]
     Dosage: 25 MG, UNK
  8. LISINOPRIL [Concomitant]
     Dosage: 2.5 MG, UNK
  9. FLUTICASONE PROPIONATE [Concomitant]
     Dosage: UNK
  10. AMBIEN [Concomitant]
     Dosage: 5 MG, UNK
  11. HYDROXYCHLOROQUINE [Concomitant]
     Dosage: 200 MG, UNK
  12. VENTOLIN HFA [Concomitant]
     Dosage: UNK
  13. ALLEGRA [Concomitant]
     Dosage: 30 MG, UNK
  14. VOLTAREN                           /00372301/ [Concomitant]
     Dosage: 50 MG, UNK

REACTIONS (1)
  - Drug ineffective [Unknown]
